FAERS Safety Report 4423549-4 (Version None)
Quarter: 2004Q3

REPORT INFORMATION
  Report Type: 
  Country: None (occurrence: None)
  Receive Date: 20040805
  Receipt Date: 20040722
  Transmission Date: 20050211
  Serious: Yes (Death)
  Sender: FDA-Public Use
  Company Number: GB-JNJFOC-20040703663

PATIENT
  Age: 64 Year
  Sex: Male

DRUGS (5)
  1. REMICADE [Suspect]
     Indication: RHEUMATOID ARTHRITIS
     Dosage: 300 MG, INTRAVENOUS
     Route: 042
     Dates: start: 20041014, end: 20040401
  2. METHOTREXATE [Concomitant]
  3. FOLIC ACID [Concomitant]
  4. BENDROFLUAZIDE (BENDROFLUAZIDE) [Concomitant]
  5. VALSARTAN (VALSARTAN) [Concomitant]

REACTIONS (3)
  - BACK PAIN [None]
  - METASTASES TO BONE [None]
  - PAIN EXACERBATED [None]
